FAERS Safety Report 6191702-8 (Version None)
Quarter: 2009Q2

REPORT INFORMATION
  Report Type: 
  Country: None (occurrence: None)
  Receive Date: 20090515
  Receipt Date: 20090506
  Transmission Date: 20091009
  Serious: Yes (Other)
  Sender: FDA-Public Use
  Company Number: CH-ASTRAZENECA-2009PK01227

PATIENT
  Age: 67 Year
  Sex: Male

DRUGS (12)
  1. NEXIUM [Suspect]
     Route: 048
  2. ACETAMINOPHEN [Suspect]
     Route: 041
     Dates: start: 20090209, end: 20090213
  3. DAFALGAN [Suspect]
     Route: 048
     Dates: start: 20090213, end: 20090219
  4. CEFEPIME [Suspect]
     Route: 041
     Dates: start: 20090212, end: 20090220
  5. DALMADORM MITE [Suspect]
     Route: 048
     Dates: start: 20090211, end: 20090216
  6. ASPIRIN [Concomitant]
     Dosage: LONG TERM
     Route: 048
  7. CYMBALTA [Concomitant]
     Dosage: LONG TERM
     Route: 048
  8. PRAVASTATIN TEVA [Concomitant]
     Dosage: LONG TERM
     Route: 048
  9. RISPERDAL [Concomitant]
     Dosage: LONG TERM
     Route: 048
  10. TEGRETOL [Concomitant]
     Dosage: LONG TERM
     Route: 048
  11. TRITTICO [Concomitant]
     Route: 048
     Dates: start: 20090313
  12. XANAX [Concomitant]
     Dosage: LONG TERM
     Route: 048

REACTIONS (1)
  - LIVER INJURY [None]
